FAERS Safety Report 7131681-X (Version None)
Quarter: 2010Q4

REPORT INFORMATION
  Report Type: 
  Country: None (occurrence: None)
  Receive Date: 20101201
  Receipt Date: 20101123
  Transmission Date: 20110411
  Serious: Yes (Hospitalization)
  Sender: FDA-Public Use
  Company Number: DE-MERCK-0901DEU00075

PATIENT
  Age: 63 Year
  Sex: Male
  Weight: 80 kg

DRUGS (6)
  1. ZOCOR [Suspect]
     Indication: CAROTID ARTERY STENOSIS
     Route: 048
     Dates: start: 20080519, end: 20081014
  2. OPIPRAMOL HYDROCHLORIDE [Suspect]
     Indication: GENERALISED ANXIETY DISORDER
     Route: 048
     Dates: start: 20070901, end: 20081014
  3. ASPIRIN [Suspect]
     Indication: CAROTID ARTERY STENOSIS
     Route: 048
     Dates: start: 20080519, end: 20081010
  4. ST JOHNS WORT [Suspect]
     Indication: GENERALISED ANXIETY DISORDER
     Route: 048
     Dates: start: 20080301, end: 20081014
  5. BISOPROLOL [Concomitant]
     Indication: HYPERTENSION
     Route: 048
     Dates: start: 20060901, end: 20080928
  6. BISOPROLOL [Concomitant]
     Route: 048
     Dates: start: 20080929

REACTIONS (3)
  - DRUG TOXICITY [None]
  - HEPATIC ENZYME INCREASED [None]
  - HEPATIC STEATOSIS [None]
